FAERS Safety Report 4505069-1 (Version None)
Quarter: 2004Q4

REPORT INFORMATION
  Report Type: 
  Country: None (occurrence: None)
  Receive Date: 20041116
  Receipt Date: 20041102
  Transmission Date: 20050328
  Serious: Yes (Life-Threatening)
  Sender: FDA-Public Use
  Company Number: 210128

PATIENT
  Age: 75 Year
  Sex: Female

DRUGS (3)
  1. RITUXAN [Suspect]
     Indication: LYMPHOMA
     Dosage: 500 MG, INTRAVENOUS
     Route: 042
     Dates: start: 20040805
  2. DOXORUBICIN(DOXORUBICIN, DOXORUBICIN HYDROCHLORIDE) [Concomitant]
  3. VINCRISTINE [Concomitant]

REACTIONS (2)
  - HEPATIC ENCEPHALOPATHY [None]
  - HEPATIC FAILURE [None]
